FAERS Safety Report 8422914-8 (Version None)
Quarter: 2012Q2

REPORT INFORMATION
  Report Type: 
  Country: None (occurrence: None)
  Receive Date: 20120608
  Receipt Date: 20120531
  Transmission Date: 20120825
  Serious: Yes (Hospitalization, Congenital Anomaly)
  Sender: FDA-Public Use
  Company Number: US-GLAXOSMITHKLINE-A0980402A

PATIENT
  Sex: Female

DRUGS (6)
  1. ZOFRAN [Concomitant]
  2. PAXIL [Suspect]
     Indication: DEPRESSION
     Route: 064
  3. REGLAN [Concomitant]
  4. AMOXICILLIN [Concomitant]
  5. VITAMIN AND MINERAL PRENATAL SUPPLEMENT W/ FOLIC ACID CAP [Concomitant]
  6. LABETALOL HYDROCHLORIDE [Concomitant]

REACTIONS (4)
  - FOETAL EXPOSURE DURING PREGNANCY [None]
  - RESPIRATORY DISTRESS [None]
  - CARDIAC MURMUR [None]
  - PREMATURE BABY [None]
